FAERS Safety Report 8950261 (Version 1)
Quarter: 2012Q4

REPORT INFORMATION
  Report Type: 
  Country: CH (occurrence: CH)
  Receive Date: 20121205
  Receipt Date: 20121205
  Transmission Date: 20130627
  Serious: Yes (Hospitalization)
  Sender: FDA-Public Use
  Company Number: PHHY2012CH108363

PATIENT
  Age: 72 Year
  Sex: Male

DRUGS (4)
  1. SANDIMMUN [Suspect]
     Indication: LIVER TRANSPLANT
     Dosage: 10 mg, BID
     Route: 048
  2. INCIVO [Interacting]
     Indication: VIRAEMIA
     Dosage: 375 mg
     Route: 048
     Dates: start: 20120924, end: 20121004
  3. COPEGUS [Concomitant]
     Indication: CHRONIC HEPATITIS C
     Dosage: 200 mg, BID
     Route: 048
  4. PEGASYS [Concomitant]
     Indication: CHRONIC HEPATITIS C
     Dosage: 45 mg, QW
     Route: 048

REACTIONS (8)
  - Renal failure acute [Recovering/Resolving]
  - Cardiomegaly [Unknown]
  - Bradycardia [Unknown]
  - Pleural effusion [Unknown]
  - Nephropathy [Recovering/Resolving]
  - Hyperkalaemia [Recovering/Resolving]
  - Fluid overload [Recovering/Resolving]
  - Hyponatraemia [Recovering/Resolving]
